APPROVED DRUG PRODUCT: MERREM IV
Active Ingredient: MEROPENEM
Strength: 1GM/VIAL
Dosage Form/Route: INJECTABLE;INJECTION
Application: N050706 | Product #001
Applicant: PFIZER INC
Approved: Jun 21, 1996 | RLD: Yes | RS: No | Type: DISCN